FAERS Safety Report 19399937 (Version 1)
Quarter: 2021Q2

REPORT INFORMATION
  Report Type: Spontaneous
  Country: US (occurrence: US)
  Receive Date: 20210610
  Receipt Date: 20210610
  Transmission Date: 20210717
  Serious: No
  Sender: FDA-Public Use
  Company Number: US-MYLANLABS-2021M1030777

PATIENT
  Sex: Male
  Weight: 93 kg

DRUGS (2)
  1. SEMGLEE [Suspect]
     Active Substance: INSULIN GLARGINE
     Indication: TYPE 1 DIABETES MELLITUS
     Dosage: 40 INTERNATIONAL UNIT, BID
  2. ADMELOG [Concomitant]
     Active Substance: INSULIN LISPRO
     Dosage: UNK

REACTIONS (4)
  - Stress [Unknown]
  - Blood pressure increased [Unknown]
  - Device issue [Not Recovered/Not Resolved]
  - Weight increased [Unknown]
